FAERS Safety Report 5414750-1 (Version None)
Quarter: 2007Q3

REPORT INFORMATION
  Report Type: 
  Country: None (occurrence: None)
  Receive Date: 20070813
  Receipt Date: 20070810
  Transmission Date: 20080115
  Serious: Yes (Life-Threatening, Hospitalization)
  Sender: FDA-Public Use
  Company Number: 07H-163-0313000-00

PATIENT
  Age: 35 Year
  Sex: Male
  Weight: 104.3273 kg

DRUGS (4)
  1. NALBUPHINE HYDROCHLORIDE [Suspect]
     Indication: MUSCLE SPASMS
     Dosage: 20 MG, ONCE, INTRAMUSCULAR
     Route: 030
     Dates: start: 20070223, end: 20070223
  2. PHENERGAN [Concomitant]
  3. VALIUM [Concomitant]
  4. TORADOL [Concomitant]

REACTIONS (1)
  - RESPIRATORY ARREST [None]
